FAERS Safety Report 7469708-8 (Version None)
Quarter: 2011Q2

REPORT INFORMATION
  Report Type: 
  Country: None (occurrence: None)
  Receive Date: 20110510
  Receipt Date: 20110502
  Transmission Date: 20111010
  Serious: Yes (Other)
  Sender: FDA-Public Use
  Company Number: US-BRISTOL-MYERS SQUIBB COMPANY-15712292

PATIENT
  Age: 51 Year
  Sex: Female

DRUGS (2)
  1. CISPLATIN [Suspect]
  2. FLUOROURACIL [Suspect]

REACTIONS (1)
  - MARCHIAFAVA-BIGNAMI DISEASE [None]
